FAERS Safety Report 20652380 (Version 1)
Quarter: 2022Q1

REPORT INFORMATION
  Report Type: Report from Study
  Country: CO (occurrence: CO)
  Receive Date: 20220330
  Receipt Date: 20220330
  Transmission Date: 20220423
  Serious: Yes (Hospitalization, Other)
  Sender: FDA-Public Use
  Company Number: CO-AMGEN-COLSL2022012051

PATIENT
  Age: 61 Year
  Sex: Female

DRUGS (2)
  1. VECTIBIX [Suspect]
     Active Substance: PANITUMUMAB
     Indication: Colorectal cancer metastatic
     Dosage: 510 MILLIGRAM, Q2WK
     Route: 042
     Dates: start: 20220104, end: 20220126
  2. ARTIFICIAL TEARS (POLYVINYL ALCOHOL) [Concomitant]
     Active Substance: POLYVINYL ALCOHOL
     Dosage: 1 DROP, BID (1 DROP IN EACH EYE)
     Route: 031
     Dates: start: 20220120

REACTIONS (5)
  - Hospitalisation [Not Recovered/Not Resolved]
  - Skin laceration [Not Recovered/Not Resolved]
  - Eye inflammation [Not Recovered/Not Resolved]
  - Dry skin [Not Recovered/Not Resolved]
  - Erythema [Not Recovered/Not Resolved]

NARRATIVE: CASE EVENT DATE: 20220101
